FAERS Safety Report 8348455-4 (Version None)
Quarter: 2012Q2

REPORT INFORMATION
  Report Type: 
  Country: None (occurrence: None)
  Receive Date: 20120509
  Receipt Date: 20120502
  Transmission Date: 20120825
  Serious: Yes (Death)
  Sender: FDA-Public Use
  Company Number: US-BAXTER-2012BAX004557

PATIENT
  Sex: Male

DRUGS (1)
  1. ARALAST NP [Suspect]
     Route: 042

REACTIONS (1)
  - DEATH [None]
